FAERS Safety Report 7606484-X (Version None)
Quarter: 2011Q3

REPORT INFORMATION
  Report Type: 
  Country: None (occurrence: None)
  Receive Date: 20110713
  Receipt Date: 20110627
  Transmission Date: 20111222
  Serious: Yes (Hospitalization)
  Sender: FDA-Public Use
  Company Number: US-AMGEN-USASP2011032928

PATIENT
  Age: 63 Year
  Sex: Male

DRUGS (3)
  1. ANTIBIOTICS [Suspect]
     Dosage: UNK
     Route: 042
  2. ENBREL [Suspect]
     Indication: PSORIASIS
     Dosage: 50 MG, QWK
     Dates: start: 20090709, end: 20110113
  3. ANTIBIOTICS [Suspect]
     Dosage: UNK
     Route: 048

REACTIONS (8)
  - STAPHYLOCOCCAL INFECTION [None]
  - TIBIA FRACTURE [None]
  - WEIGHT DECREASED [None]
  - PSORIASIS [None]
  - IMPAIRED HEALING [None]
  - FALL [None]
  - INCISION SITE INFECTION [None]
  - FIBULA FRACTURE [None]
